FAERS Safety Report 9290907 (Version 1)
Quarter: 2013Q2

REPORT INFORMATION
  Report Type: Spontaneous
  Country: US (occurrence: US)
  Receive Date: 20130515
  Receipt Date: 20130515
  Transmission Date: 20140414
  Serious: Yes (Other)
  Sender: FDA-Public Use
  Company Number: US-LUNDBECK-DKLU1090917

PATIENT
  Sex: Female

DRUGS (1)
  1. PANHEMATIN [Suspect]
     Indication: PORPHYRIA

REACTIONS (1)
  - Hypersensitivity [Recovered/Resolved]
